FAERS Safety Report 23130380 (Version 2)
Quarter: 2023Q4

REPORT INFORMATION
  Report Type: Spontaneous
  Country: CZ (occurrence: None)
  Receive Date: 20231031
  Receipt Date: 20231109
  Transmission Date: 20240109
  Serious: Yes (Other)
  Sender: FDA-Public Use
  Company Number: 2023A246202

PATIENT
  Age: 74 Year
  Sex: Female

DRUGS (4)
  1. GEFITINIB [Suspect]
     Active Substance: GEFITINIB
     Indication: Lung adenocarcinoma stage IV
     Route: 048
     Dates: start: 201805
  2. OSIMERTINIB [Suspect]
     Active Substance: OSIMERTINIB
     Indication: Lung adenocarcinoma stage IV
     Route: 048
     Dates: start: 202001
  3. PEMETREXED [Concomitant]
     Active Substance: PEMETREXED
     Dates: start: 201904, end: 201908
  4. ERLOTINIB [Concomitant]
     Active Substance: ERLOTINIB
     Dates: start: 201909, end: 201912

REACTIONS (4)
  - Malignant neoplasm progression [Recovered/Resolved]
  - EGFR gene mutation [Unknown]
  - Drug resistance [Unknown]
  - Skin toxicity [Unknown]

NARRATIVE: CASE EVENT DATE: 20190401
